FAERS Safety Report 6710718-3 (Version None)
Quarter: 2010Q1

REPORT INFORMATION
  Report Type: 
  Country: None (occurrence: None)
  Receive Date: 20100308
  Receipt Date: 20100308
  Transmission Date: 20100710
  Serious: Yes (Hospitalization)
  Sender: FDA-Public Use
  Company Number: None

PATIENT
  Age: 76 Year
  Sex: Female
  Weight: 53.2 kg

DRUGS (1)
  1. BENDAMUSTINE [Suspect]
     Dosage: MG D 1, 2 IV Q 21 DAYS

REACTIONS (4)
  - NEUTROPENIA [None]
  - PNEUMONITIS [None]
  - PYREXIA [None]
  - WHITE BLOOD CELL COUNT DECREASED [None]
